FAERS Safety Report 7709202-X (Version None)
Quarter: 2011Q3

REPORT INFORMATION
  Report Type: 
  Country: None (occurrence: None)
  Receive Date: 20110825
  Receipt Date: 20110818
  Transmission Date: 20111222
  Serious: Yes (Death)
  Sender: FDA-Public Use
  Company Number: PHHY2011BR32966

PATIENT
  Age: 77 Year
  Sex: Female

DRUGS (4)
  1. GALVUS MET [Suspect]
     Indication: DIABETES MELLITUS
     Dosage: 850 MG METF AND 50 MG VILD
  2. DIOVAN [Suspect]
     Indication: HYPERTENSION
     Dosage: 320 MG, UNK
  3. OLCADIL [Suspect]
     Indication: INSOMNIA
     Dosage: 2 MG, UNK
  4. BIMATOPROST AND TIMOLOL MALEATE [Suspect]
     Indication: GLAUCOMA

REACTIONS (1)
  - SEPTIC SHOCK [None]
